FAERS Safety Report 8733584 (Version 3)
Quarter: 2017Q3

REPORT INFORMATION
  Report Type: Spontaneous
  Country: US (occurrence: US)
  Receive Date: 20120821
  Receipt Date: 20170811
  Transmission Date: 20171128
  Serious: Yes (Other)
  Sender: FDA-Public Use
  Company Number: US-PFIZER INC-2012203623

PATIENT
  Sex: Female

DRUGS (2)
  1. CELEBREX [Suspect]
     Active Substance: CELECOXIB
     Dosage: UNK
     Dates: start: 20020101
  2. DIFLUCAN [Suspect]
     Active Substance: FLUCONAZOLE
     Dosage: UNK

REACTIONS (1)
  - Fungal infection [Unknown]

NARRATIVE: CASE EVENT DATE: 20090101
